FAERS Safety Report 4473782-0 (Version None)
Quarter: 2004Q3

REPORT INFORMATION
  Report Type: 
  Country: None (occurrence: None)
  Receive Date: 20040910
  Receipt Date: 20040811
  Transmission Date: 20050211
  Serious: No
  Sender: FDA-Public Use
  Company Number: 2004228573US

PATIENT
  Age: 85 Year
  Sex: Female
  Weight: 47.6 kg

DRUGS (2)
  1. BEXTRA [Suspect]
     Indication: LIMB DISCOMFORT
     Dosage: 10 MG, ORAL
     Route: 048
     Dates: start: 20040810
  2. KLONOPIN [Concomitant]

REACTIONS (2)
  - FEELING ABNORMAL [None]
  - STOMACH DISCOMFORT [None]
